FAERS Safety Report 8573319-0 (Version None)
Quarter: 2012Q2

REPORT INFORMATION
  Report Type: 
  Country: None (occurrence: None)
  Receive Date: 20120418
  Receipt Date: 20080310
  Transmission Date: 20120825
  Serious: Yes (Other)
  Sender: FDA-Public Use
  Company Number: PHEH2008US02245

PATIENT
  Sex: Female

DRUGS (2)
  1. DIOVAN HCT [Suspect]
     Dosage: 160/25 MG
  2. DIOVAN HCT [Suspect]
     Dates: start: 19990101

REACTIONS (6)
  - DIZZINESS [None]
  - HYPOAESTHESIA [None]
  - DRY MOUTH [None]
  - RHINORRHOEA [None]
  - HEADACHE [None]
  - HYPERTENSION [None]
